FAERS Safety Report 17931007 (Version 2)
Quarter: 2020Q2

REPORT INFORMATION
  Report Type: Report from Study
  Country: ES (occurrence: ES)
  Receive Date: 20200623
  Receipt Date: 20200630
  Transmission Date: 20200714
  Serious: Yes (Hospitalization)
  Sender: FDA-Public Use
  Company Number: ES-MYLANLABS-2020M1057160

PATIENT
  Age: 69 Year
  Sex: Female

DRUGS (7)
  1. DUODOPA [Suspect]
     Active Substance: CARBIDOPA\LEVODOPA
     Indication: PARKINSON^S DISEASE
     Dosage: CONTINUOUS DOSE DECREASED TO 2.1 ML/H
     Route: 050
     Dates: start: 20200603
  2. DUODOPA [Suspect]
     Active Substance: CARBIDOPA\LEVODOPA
     Dosage: INCREASE THE CONTINUOUS DOSE
     Route: 050
     Dates: start: 20200526, end: 20200603
  3. RIVASTIGMINE. [Suspect]
     Active Substance: RIVASTIGMINE
     Indication: HALLUCINATION
     Dosage: 3.5 -0-4 (DROPS),  2 DOSAGE FORM
     Route: 065
     Dates: start: 20200523, end: 202006
  4. RIVASTIGMINE. [Suspect]
     Active Substance: RIVASTIGMINE
     Dosage: 2 DOSAGE FORM, QD, 4.5 DROPS AND 5 DROPS
     Route: 065
     Dates: start: 20200519, end: 20200523
  5. RIVASTIGMINE. [Suspect]
     Active Substance: RIVASTIGMINE
     Dosage: UNK, 3-0-3
     Route: 065
     Dates: start: 202006
  6. DUODOPA [Suspect]
     Active Substance: CARBIDOPA\LEVODOPA
     Dosage: UNK
     Route: 050
     Dates: start: 20160518, end: 20200526
  7. TRAMADOL. [Concomitant]
     Active Substance: TRAMADOL
     Indication: PRODUCT USED FOR UNKNOWN INDICATION
     Dosage: UNK
     Dates: end: 2020

REACTIONS (11)
  - Vomiting [Recovered/Resolved]
  - Feeling abnormal [Not Recovered/Not Resolved]
  - Nausea [Recovered/Resolved]
  - Hallucination, visual [Recovered/Resolved]
  - Tremor [Recovered/Resolved]
  - Asthenia [Unknown]
  - Muscular weakness [Recovering/Resolving]
  - On and off phenomenon [Recovered/Resolved]
  - Discomfort [Recovered/Resolved]
  - Loss of personal independence in daily activities [Unknown]
  - Gait inability [Unknown]

NARRATIVE: CASE EVENT DATE: 2020
